FAERS Safety Report 4445011-5 (Version None)
Quarter: 2004Q3

REPORT INFORMATION
  Report Type: 
  Country: None (occurrence: None)
  Receive Date: 20040908
  Receipt Date: 20040908
  Transmission Date: 20050211
  Serious: Yes (Hospitalization, Other)
  Sender: FDA-Public Use
  Company Number: None

PATIENT
  Age: 20 Year
  Sex: Female
  Weight: 63.5036 kg

DRUGS (5)
  1. ACCUTANE [Suspect]
     Indication: ACNE
     Dosage: 70MG   TWICE/DAY   ORAL
     Route: 048
     Dates: start: 20020601, end: 20020914
  2. ACCUTANE [Suspect]
     Indication: DISEASE RECURRENCE
     Dosage: 70MG   TWICE/DAY   ORAL
     Route: 048
     Dates: start: 20020601, end: 20020914
  3. ACCUTANE [Suspect]
     Indication: PAIN
     Dosage: 70MG   TWICE/DAY   ORAL
     Route: 048
     Dates: start: 20020601, end: 20020914
  4. NAPROXEN SODIUM [Concomitant]
  5. TRI NORYNIL [Concomitant]

REACTIONS (11)
  - ABNORMAL DREAMS [None]
  - ACQUIRED NIGHT BLINDNESS [None]
  - ANXIETY [None]
  - ASTHMA [None]
  - CHEST PAIN [None]
  - EYE PAIN [None]
  - HEADACHE [None]
  - HYPOGLYCAEMIA [None]
  - IRRITABLE BOWEL SYNDROME [None]
  - PANIC ATTACK [None]
  - PERSONALITY CHANGE [None]
